FAERS Safety Report 4873963-8 (Version None)
Quarter: 2006Q1

REPORT INFORMATION
  Report Type: 
  Country: None (occurrence: None)
  Receive Date: 20060106
  Receipt Date: 20051228
  Transmission Date: 20060701
  Serious: Yes (Hospitalization)
  Sender: FDA-Public Use
  Company Number: FR-JNJFOC-20051206015

PATIENT
  Age: 90 Year
  Sex: Female

DRUGS (8)
  1. DURAGESIC-100 [Suspect]
     Indication: DRUG USE FOR UNKNOWN INDICATION
     Route: 062
  2. PREVISCAN [Suspect]
     Indication: DRUG USE FOR UNKNOWN INDICATION
     Route: 048
  3. INNOHEP [Suspect]
     Indication: DRUG USE FOR UNKNOWN INDICATION
     Route: 058
  4. COVERSYL [Concomitant]
     Route: 065
  5. LASILIX [Concomitant]
     Route: 065
  6. ALPRESS [Concomitant]
     Route: 065
  7. STILNOX [Concomitant]
     Route: 065
  8. ATHYMIL [Concomitant]
     Route: 065

REACTIONS (3)
  - ANAEMIA [None]
  - INTERNATIONAL NORMALISED RATIO INCREASED [None]
  - RECTAL HAEMORRHAGE [None]
